FAERS Safety Report 10669820 (Version 3)
Quarter: 2015Q1

REPORT INFORMATION
  Report Type: Report from Study
  Country: US (occurrence: US)
  Receive Date: 20141222
  Receipt Date: 20150225
  Transmission Date: 20150720
  Serious: Yes (Hospitalization)
  Sender: FDA-Public Use
  Company Number: US-ACTELION-A-US2014-109835

PATIENT
  Age: 39 Year
  Sex: Female

DRUGS (6)
  1. METOLAZONE. [Concomitant]
     Active Substance: METOLAZONE
  2. ALDACTONE [Concomitant]
     Active Substance: SPIRONOLACTONE
  3. WARFARIN [Concomitant]
     Active Substance: WARFARIN
  4. BUMEX [Concomitant]
     Active Substance: BUMETANIDE
  5. MACITENTAN [Suspect]
     Active Substance: MACITENTAN
     Indication: PULMONARY ARTERIAL HYPERTENSION
     Dosage: 10 MG, QD
     Route: 048
  6. REVATIO [Concomitant]
     Active Substance: SILDENAFIL CITRATE

REACTIONS (6)
  - Blood count abnormal [Unknown]
  - Swelling [Unknown]
  - Dyspnoea [Recovering/Resolving]
  - Abdominal distension [Recovering/Resolving]
  - Gait disturbance [Recovering/Resolving]
  - Oedema peripheral [Recovering/Resolving]

NARRATIVE: CASE EVENT DATE: 20141116
